FAERS Safety Report 10235894 (Version 1)
Quarter: 2014Q1

REPORT INFORMATION
  Report Type: Spontaneous
  Country: US (occurrence: None)
  Receive Date: 20140306
  Receipt Date: 20140306
  Transmission Date: 20141002
  Serious: Yes (Hospitalization)
  Sender: FDA-Public Use
  Company Number: 163-21880-13103688

PATIENT
  Age: 71 Year
  Sex: Male

DRUGS (6)
  1. REVLIMID (LENALIDOMIDE) (CAPSULES) [Suspect]
     Indication: CHRONIC LYMPHOCYTIC LEUKAEMIA
     Dosage: 2.5 MG, 21 IN 21 D. PO
     Route: 048
     Dates: start: 20130731, end: 20130912
  2. REVLIMID (LENALIDOMIDE) (CAPSULES) [Suspect]
     Indication: CHRONIC LYMPHOCYTIC LEUKAEMIA
     Dosage: 2.5 MG, 21 IN 21 D. PO
     Route: 048
     Dates: start: 20130731, end: 20130912
  3. FLUDARABINE (FLUDARABINE) [Concomitant]
  4. CTYTOXAN (CYCLOPHOSPHAMIDE) [Concomitant]
  5. BENDAMUSTINE (BENDAMUSTINE) (BENDAMUSTINE) [Concomitant]
  6. RITUXAN (RITUXIMAB) [Concomitant]

REACTIONS (1)
  - Thrombocytopenia [None]
